FAERS Safety Report 22298842 (Version 4)
Quarter: 2023Q2

REPORT INFORMATION
  Report Type: Spontaneous
  Country: US (occurrence: US)
  Receive Date: 20230509
  Receipt Date: 20230518
  Transmission Date: 20230721
  Serious: Yes (Life-Threatening, Hospitalization, Other)
  Sender: FDA-Public Use
  Company Number: US-PFIZER INC-PV202300080636

PATIENT
  Age: 33 Year
  Sex: Female

DRUGS (3)
  1. MAGNESIUM SULFATE [Suspect]
     Active Substance: MAGNESIUM SULFATE
     Indication: Hypomagnesaemia
     Dosage: 5 G, DAILY
     Route: 042
  2. MAGNESIUM SULFATE [Suspect]
     Active Substance: MAGNESIUM SULFATE
     Indication: Hypomagnesaemia
     Dosage: 1 G, IN A LATEX FREE PREPARATION
     Route: 042
  3. MAGNESIUM SULFATE [Concomitant]
     Active Substance: MAGNESIUM SULFATE
     Indication: Mineral supplementation
     Route: 048

REACTIONS (3)
  - Reaction to excipient [Recovered/Resolved]
  - Type I hypersensitivity [Recovered/Resolved]
  - Anaphylactic reaction [Recovered/Resolved]
